FAERS Safety Report 10086077 (Version 1)
Quarter: 2014Q2

REPORT INFORMATION
  Report Type: Spontaneous
  Country: None (occurrence: None)
  Receive Date: 20140415
  Receipt Date: 20140415
  Transmission Date: 20141212
  Serious: Yes (Hospitalization)
  Sender: FDA-Public Use
  Company Number: 09-AUR-10429

PATIENT
  Age: 60 Year
  Sex: Female

DRUGS (1)
  1. CEFTRIAXONE [Suspect]
     Indication: BACTERIURIA
     Dosage: 2GM, D), INTRAVENOUS
     Route: 042

REACTIONS (7)
  - Mental status changes [None]
  - Apathy [None]
  - Somnolence [None]
  - Hyperglycaemia [None]
  - Toxic encephalopathy [None]
  - Electroencephalogram abnormal [None]
  - Cerebrovascular disorder [None]
